FAERS Safety Report 4785980-7 (Version None)
Quarter: 2005Q4

REPORT INFORMATION
  Report Type: 
  Country: None (occurrence: None)
  Receive Date: 20051003
  Receipt Date: 20050722
  Transmission Date: 20060501
  Serious: Yes (Hospitalization)
  Sender: FDA-Public Use
  Company Number: PHEH2005US08172

PATIENT
  Age: 70 Year
  Sex: Male
  Weight: 102 kg

DRUGS (1)
  1. DIOVAN HCT [Suspect]
     Indication: HYPERTENSION
     Dosage: 1 DF, QD
     Route: 048
     Dates: start: 20031219

REACTIONS (5)
  - BIOPSY [None]
  - BLOOD PRESSURE FLUCTUATION [None]
  - BLOOD PRESSURE INCREASED [None]
  - LUNG NEOPLASM MALIGNANT [None]
  - PHARMACEUTICAL PRODUCT COMPLAINT [None]
